FAERS Safety Report 16647996 (Version 3)
Quarter: 2019Q3

REPORT INFORMATION
  Report Type: Spontaneous
  Country: US (occurrence: US)
  Receive Date: 20190730
  Receipt Date: 20190913
  Transmission Date: 20191004
  Serious: No
  Sender: FDA-Public Use
  Company Number: US-JNJFOC-20190737886

PATIENT
  Age: 63 Year
  Sex: Female
  Weight: 73.55 kg

DRUGS (5)
  1. MESALAMINE. [Concomitant]
     Active Substance: MESALAMINE
     Indication: CROHN^S DISEASE
     Route: 065
     Dates: start: 201701
  2. CHOLESTYRAMINE. [Concomitant]
     Active Substance: CHOLESTYRAMINE
     Indication: CROHN^S DISEASE
     Route: 065
     Dates: start: 201701
  3. STELARA [Suspect]
     Active Substance: USTEKINUMAB
     Dosage: AUTOINJECTOR
     Route: 058
     Dates: start: 201901, end: 201906
  4. STELARA [Suspect]
     Active Substance: USTEKINUMAB
     Indication: CROHN^S DISEASE
     Dosage: AUTOINJECTOR
     Route: 058
     Dates: start: 20180129, end: 201901
  5. MELOXICAM. [Concomitant]
     Active Substance: MELOXICAM
     Indication: ARTHRITIS
     Route: 065

REACTIONS (4)
  - Off label use [Unknown]
  - Drug ineffective [Unknown]
  - Inappropriate schedule of product administration [Unknown]
  - HLA marker study positive [Unknown]

NARRATIVE: CASE EVENT DATE: 201901
